FAERS Safety Report 13905160 (Version 1)
Quarter: 2017Q3

REPORT INFORMATION
  Report Type: Spontaneous
  Country: FR (occurrence: FR)
  Receive Date: 20170825
  Receipt Date: 20170825
  Transmission Date: 20171127
  Serious: Yes (Hospitalization)
  Sender: FDA-Public Use
  Company Number: FR-009507513-1708FRA010399

PATIENT
  Age: 50 Year
  Sex: Female

DRUGS (6)
  1. ZOMETA [Suspect]
     Active Substance: ZOLEDRONIC ACID
     Dosage: UNK
     Dates: start: 20170718
  2. INNOHEP [Suspect]
     Active Substance: TINZAPARIN SODIUM
     Dosage: UNK
     Dates: start: 20170622, end: 20170731
  3. LAROXYL [Suspect]
     Active Substance: AMITRIPTYLINE
     Indication: BONE PAIN
     Dosage: UNK
     Dates: start: 20170622
  4. KEYTRUDA [Suspect]
     Active Substance: PEMBROLIZUMAB
     Dosage: UNK
     Route: 042
     Dates: start: 20170718
  5. TARGOCID [Suspect]
     Active Substance: TEICOPLANIN
     Indication: THROMBOPHLEBITIS SEPTIC
     Dosage: UNK
     Route: 042
     Dates: start: 20170711, end: 20170729
  6. CIFLOX (CIPROFLOXACIN HYDROCHLORIDE) [Suspect]
     Active Substance: CIPROFLOXACIN HYDROCHLORIDE
     Dosage: UNK
     Dates: start: 20170730

REACTIONS (1)
  - Thrombocytopenia [Not Recovered/Not Resolved]

NARRATIVE: CASE EVENT DATE: 20170731
